FAERS Safety Report 16163060 (Version 1)
Quarter: 2019Q2

REPORT INFORMATION
  Report Type: Spontaneous
  Country: AU (occurrence: AU)
  Receive Date: 20190405
  Receipt Date: 20190405
  Transmission Date: 20190711
  Serious: Yes (Other)
  Sender: FDA-Public Use
  Company Number: AU-SA-2019SA092725

PATIENT
  Age: 43 Year
  Sex: Female

DRUGS (2)
  1. LEMTRADA [Suspect]
     Active Substance: ALEMTUZUMAB
     Dosage: UNK, UNK
     Route: 065
     Dates: start: 201801
  2. LEMTRADA [Suspect]
     Active Substance: ALEMTUZUMAB
     Dosage: UNK, UNK
     Route: 065
     Dates: start: 201701

REACTIONS (3)
  - Skin laceration [Unknown]
  - Limb discomfort [Unknown]
  - Mycobacterium marinum infection [Unknown]
